FAERS Safety Report 11466118 (Version 1)
Quarter: 2015Q3

REPORT INFORMATION
  Report Type: Spontaneous
  Country: US (occurrence: US)
  Receive Date: 20150907
  Receipt Date: 20150907
  Transmission Date: 20151125
  Serious: Yes (Other)
  Sender: FDA-Public Use
  Company Number: US-TAKEDA-2014TUS011365

PATIENT

DRUGS (25)
  1. ACTOS [Suspect]
     Active Substance: PIOGLITAZONE HYDROCHLORIDE
     Dosage: 45 MG, UNK
     Route: 048
     Dates: start: 20041214, end: 20060117
  2. METFORMIN [Concomitant]
     Active Substance: METFORMIN HYDROCHLORIDE
     Dosage: 500 MG, BID
     Dates: start: 20030122
  3. DIABETA                            /00145301/ [Concomitant]
     Dosage: 4MG HALF TAB A DAY
     Dates: start: 20051209
  4. LANTUS [Concomitant]
     Active Substance: INSULIN GLARGINE
     Dosage: 16 IU HS
     Dates: start: 20060112, end: 20061129
  5. LANTUS [Concomitant]
     Active Substance: INSULIN GLARGINE
     Dosage: 8 IU, QD
  6. ACTOS [Suspect]
     Active Substance: PIOGLITAZONE HYDROCHLORIDE
     Dosage: 30 MG, UNK
     Route: 048
     Dates: start: 20040319, end: 20040528
  7. GLUCOPHAGE [Concomitant]
     Active Substance: METFORMIN HYDROCHLORIDE
     Dosage: XR 500MG,BID
     Dates: start: 20011203
  8. LANTUS [Concomitant]
     Active Substance: INSULIN GLARGINE
     Dosage: UNK
     Dates: start: 20101208
  9. AMARYL [Concomitant]
     Active Substance: GLIMEPIRIDE
     Dosage: 4 MG, QD
     Dates: start: 20001004, end: 20030122
  10. METFORMIN [Concomitant]
     Active Substance: METFORMIN HYDROCHLORIDE
     Dosage: 500 MG 2 TABS AFTER SUPPER: UNK
     Dates: start: 20010830
  11. AMARYL [Concomitant]
     Active Substance: GLIMEPIRIDE
     Dosage: 4 MG, QD
     Dates: start: 20051012, end: 20051214
  12. ACTOS [Suspect]
     Active Substance: PIOGLITAZONE HYDROCHLORIDE
     Indication: TYPE 2 DIABETES MELLITUS
     Dosage: 15 MG, UNK
     Route: 048
     Dates: start: 20030821, end: 20040318
  13. LANTUS [Concomitant]
     Active Substance: INSULIN GLARGINE
     Dosage: 10 IU BEDTIME
     Dates: start: 20051214, end: 20060112
  14. LANTUS [Concomitant]
     Active Substance: INSULIN GLARGINE
     Dosage: UNK
     Dates: start: 20130118
  15. METFORMIN [Concomitant]
     Active Substance: METFORMIN HYDROCHLORIDE
     Dosage: 1000 MG, BID
     Dates: start: 20030128, end: 20060112
  16. AMARYL [Concomitant]
     Active Substance: GLIMEPIRIDE
     Dosage: 4 MG HALF TAB IN AM
     Dates: start: 20050817, end: 20051012
  17. AMARYL [Concomitant]
     Active Substance: GLIMEPIRIDE
     Dosage: 4 MG, UNK
     Dates: start: 20101208
  18. METFORMIN [Concomitant]
     Active Substance: METFORMIN HYDROCHLORIDE
     Dosage: 1000 MG, BID
     Dates: start: 20101209
  19. GLUCOPHAGE [Concomitant]
     Active Substance: METFORMIN HYDROCHLORIDE
     Dosage: 1000 MG, BID
     Dates: start: 20010117
  20. GLUCOPHAGE [Concomitant]
     Active Substance: METFORMIN HYDROCHLORIDE
     Dosage: 500 MG, QD
     Dates: start: 20010525, end: 20011203
  21. LANTUS [Concomitant]
     Active Substance: INSULIN GLARGINE
     Dosage: 12 IU, QD
     Dates: start: 20140619
  22. AMARYL [Concomitant]
     Active Substance: GLIMEPIRIDE
     Dosage: 4 MG HALF TAB TWICE A DAY
     Dates: start: 20030122, end: 20050817
  23. GLUCOPHAGE [Concomitant]
     Active Substance: METFORMIN HYDROCHLORIDE
     Dosage: 1000 MG, BID
     Dates: start: 20040421
  24. GLUCOPHAGE [Concomitant]
     Active Substance: METFORMIN HYDROCHLORIDE
     Dosage: 500 MG, BID
     Dates: start: 20051214
  25. EMPIRIN COMPOUND [Concomitant]
     Dosage: UNK
     Dates: start: 20130118

REACTIONS (1)
  - Bladder cancer [Unknown]

NARRATIVE: CASE EVENT DATE: 20121008
